FAERS Safety Report 6136098-2 (Version None)
Quarter: 2009Q1

REPORT INFORMATION
  Report Type: 
  Country: None (occurrence: None)
  Receive Date: 20090330
  Receipt Date: 20090319
  Transmission Date: 20090719
  Serious: Yes (Hospitalization)
  Sender: FDA-Public Use
  Company Number: US-AMGEN-QUU336314

PATIENT
  Sex: Female
  Weight: 45.9 kg

DRUGS (9)
  1. ENBREL [Suspect]
     Indication: RHEUMATOID ARTHRITIS
     Route: 058
     Dates: start: 20051001, end: 20090221
  2. ARAVA [Concomitant]
     Route: 048
  3. PREDNISONE [Concomitant]
     Route: 048
  4. BONIVA [Concomitant]
  5. CALCIUM [Concomitant]
  6. VITAMIN D [Concomitant]
  7. ABREVA [Concomitant]
  8. PRILOSEC [Concomitant]
     Route: 048
  9. VICODIN [Concomitant]

REACTIONS (7)
  - COUGH [None]
  - DYSPNOEA [None]
  - MUSCULOSKELETAL CHEST PAIN [None]
  - PLEURISY [None]
  - PNEUMONIA [None]
  - PYREXIA [None]
  - SPUTUM RETENTION [None]
